FAERS Safety Report 14304645 (Version 1)
Quarter: 2017Q4

REPORT INFORMATION
  Report Type: Report from Study
  Country: JP (occurrence: JP)
  Receive Date: 20171219
  Receipt Date: 20171219
  Transmission Date: 20180321
  Serious: Yes (Other)
  Sender: FDA-Public Use
  Company Number: JP-OTSUKA-005758

PATIENT
  Age: 75 Year
  Sex: Female
  Weight: 45.8 kg

DRUGS (16)
  1. PANTETHINE [Concomitant]
     Active Substance: PANTETHINE
     Indication: PRODUCT USED FOR UNKNOWN INDICATION
     Dosage: 600 MG, QD
     Route: 048
  2. TASMOLIN [Concomitant]
     Active Substance: BIPERIDEN
     Dosage: 4 MG, QD
     Route: 048
     Dates: start: 20080712, end: 20080815
  3. TASMOLIN [Concomitant]
     Active Substance: BIPERIDEN
     Dosage: 3 MG, QD
     Route: 048
     Dates: start: 20080816, end: 20080829
  4. RISPERDAL [Concomitant]
     Active Substance: RISPERIDONE
     Indication: SCHIZOPHRENIA
     Dosage: 4 MG, QD
     Route: 048
     Dates: end: 20080314
  5. RISPERDAL [Concomitant]
     Active Substance: RISPERIDONE
     Dosage: 2 MG, QD
     Route: 048
     Dates: start: 20080426, end: 20080516
  6. MAGNESIUM OXIDE. [Concomitant]
     Active Substance: MAGNESIUM OXIDE
     Indication: PRODUCT USED FOR UNKNOWN INDICATION
     Dosage: 1 G, DAILY DOSE
     Route: 048
  7. ARIPIPRAZOLE. [Suspect]
     Active Substance: ARIPIPRAZOLE
     Dosage: 18 MG, QD
     Route: 048
     Dates: start: 20080405, end: 20080530
  8. RISPERDAL [Concomitant]
     Active Substance: RISPERIDONE
     Dosage: 1 MG, QD
     Route: 048
     Dates: start: 20080517
  9. ARIPIPRAZOLE. [Suspect]
     Active Substance: ARIPIPRAZOLE
     Dosage: 24 MG, QD
     Route: 048
     Dates: start: 20080531
  10. TASMOLIN [Concomitant]
     Active Substance: BIPERIDEN
     Indication: PRODUCT USED FOR UNKNOWN INDICATION
     Dosage: 6 MG, QD
     Route: 048
     Dates: end: 20080627
  11. FERROMIA [Concomitant]
     Active Substance: SODIUM FERROUS CITRATE
     Indication: PRODUCT USED FOR UNKNOWN INDICATION
     Dosage: 100 MG, QD
     Route: 048
  12. TASMOLIN [Concomitant]
     Active Substance: BIPERIDEN
     Dosage: 5 MG, QD
     Route: 048
     Dates: start: 20080628, end: 20080711
  13. ARIPIPRAZOLE. [Suspect]
     Active Substance: ARIPIPRAZOLE
     Indication: SCHIZOPHRENIA
     Dosage: 12 MG, QD
     Route: 048
     Dates: start: 20080218, end: 20080404
  14. TASMOLIN [Concomitant]
     Active Substance: BIPERIDEN
     Dosage: 2 MG, QD
     Route: 048
     Dates: start: 20080830, end: 20080912
  15. TASMOLIN [Concomitant]
     Active Substance: BIPERIDEN
     Dosage: 1 MG, QD
     Route: 048
     Dates: start: 20080913, end: 20080927
  16. RISPERDAL [Concomitant]
     Active Substance: RISPERIDONE
     Dosage: 3 MG, QD
     Route: 048
     Dates: start: 20080315, end: 20080425

REACTIONS (3)
  - Blood alkaline phosphatase increased [Not Recovered/Not Resolved]
  - Anaemia [Not Recovered/Not Resolved]
  - Decreased appetite [Unknown]

NARRATIVE: CASE EVENT DATE: 20080407
